FAERS Safety Report 11462703 (Version 1)
Quarter: 2015Q3

REPORT INFORMATION
  Report Type: Spontaneous
  Country: US (occurrence: US)
  Receive Date: 20150831
  Receipt Date: 20150831
  Transmission Date: 20151125
  Serious: No
  Sender: FDA-Public Use
  Company Number: US-ELI_LILLY_AND_COMPANY-US201101001705

PATIENT
  Age: 40 Year
  Sex: Female

DRUGS (2)
  1. CYMBALTA [Suspect]
     Active Substance: DULOXETINE HYDROCHLORIDE
     Indication: PAIN
     Dosage: 60 MG, DAILY (1/D)
     Dates: start: 201012
  2. NSAID^S [Interacting]
     Active Substance: UNSPECIFIED INGREDIENT
     Dosage: 800 MG, 2/D

REACTIONS (3)
  - Off label use [Recovered/Resolved]
  - Menorrhagia [Unknown]
  - Drug interaction [Recovered/Resolved]
